FAERS Safety Report 6032085-3 (Version None)
Quarter: 2008Q4

REPORT INFORMATION
  Report Type: 
  Country: None (occurrence: None)
  Receive Date: 20081222
  Receipt Date: 20081111
  Transmission Date: 20090506
  Serious: No
  Sender: FDA-Public Use
  Company Number: US-WYE-H06824708

PATIENT
  Age: 51 Year
  Sex: Male

DRUGS (4)
  1. PRISTIQ [Suspect]
     Indication: DEPRESSED MOOD
     Dosage: 50 MG 1X PER 1 DAY, ORAL
     Route: 048
     Dates: start: 20080925, end: 20081112
  2. CLOZAPINE [Concomitant]
  3. COGENTIN [Concomitant]
  4. ABILIFY [Concomitant]

REACTIONS (3)
  - DYSPNOEA [None]
  - EPISTAXIS [None]
  - HAEMOPTYSIS [None]
